FAERS Safety Report 10969638 (Version 2)
Quarter: 2016Q1

REPORT INFORMATION
  Report Type: Other
  Country: IT (occurrence: IT)
  Receive Date: 20150331
  Receipt Date: 20160121
  Transmission Date: 20160525
  Serious: Yes (Other)
  Sender: FDA-Public Use
  Company Number: IT-TAKEDA-2015TEU002715

PATIENT
  Age: 57 Year
  Sex: Female

DRUGS (4)
  1. GLUCOBAY [Concomitant]
     Active Substance: ACARBOSE
     Dosage: 300 MG,
  2. BYETTA [Concomitant]
     Active Substance: EXENATIDE
     Dosage: 20 ?G, UNK
     Dates: start: 20140401
  3. AIRTAL [Concomitant]
     Indication: OSTEOARTHRITIS
  4. ACTOS [Suspect]
     Active Substance: PIOGLITAZONE HYDROCHLORIDE
     Indication: DIABETES MELLITUS
     Dosage: 30 MG, QD
     Route: 048
     Dates: start: 20140108, end: 20140829

REACTIONS (2)
  - Dyspnoea exertional [Recovered/Resolved]
  - Oedema peripheral [Recovered/Resolved]

NARRATIVE: CASE EVENT DATE: 20140731
